FAERS Safety Report 8163234-9 (Version None)
Quarter: 2012Q1

REPORT INFORMATION
  Report Type: 
  Country: None (occurrence: None)
  Receive Date: 20120221
  Receipt Date: 20120207
  Transmission Date: 20120608
  Serious: Yes (Hospitalization)
  Sender: FDA-Public Use
  Company Number: 2011073593

PATIENT
  Age: 56 Year
  Sex: Male

DRUGS (4)
  1. DALTEPARIN SODIUM [Suspect]
     Indication: LUNG NEOPLASM MALIGNANT
     Dosage: 5000 IU, 1X/DAY , SUBCUTANEOUS
     Route: 058
     Dates: start: 20110317, end: 20110318
  2. FERROUS SULFATE TAB [Concomitant]
  3. VENTOLIN [Concomitant]
  4. CHANTIX [Concomitant]

REACTIONS (8)
  - HAEMATOCRIT DECREASED [None]
  - EOSINOPHIL COUNT INCREASED [None]
  - MEAN CELL VOLUME DECREASED [None]
  - CEREBRAL INFARCTION [None]
  - NEUTROPHIL COUNT INCREASED [None]
  - BASOPHIL COUNT INCREASED [None]
  - HAEMOGLOBIN DECREASED [None]
  - MEAN CELL HAEMOGLOBIN CONCENTRATION DECREASED [None]
